FAERS Safety Report 10156803 (Version 4)
Quarter: 2014Q3

REPORT INFORMATION
  Report Type: Report from Study
  Country: CA (occurrence: CA)
  Receive Date: 20140507
  Receipt Date: 20140813
  Transmission Date: 20150326
  Serious: Yes (Hospitalization)
  Sender: FDA-Public Use
  Company Number: CA-JNJFOC-20130805373

PATIENT
  Age: 24 Year
  Sex: Female
  Weight: 59.9 kg

DRUGS (3)
  1. REMICADE [Suspect]
     Active Substance: INFLIXIMAB
     Indication: CROHN^S DISEASE
     Route: 042
     Dates: start: 20120921, end: 20130915
  2. REMICADE [Suspect]
     Active Substance: INFLIXIMAB
     Indication: CROHN^S DISEASE
     Route: 042
     Dates: start: 20140214
  3. REMICADE [Suspect]
     Active Substance: INFLIXIMAB
     Indication: CROHN^S DISEASE
     Route: 042
     Dates: start: 20140325

REACTIONS (5)
  - Uterine abscess [Unknown]
  - Abdominal abscess [Not Recovered/Not Resolved]
  - Exposure during pregnancy [Recovered/Resolved]
  - Crohn^s disease [Unknown]
  - Vomiting [Unknown]

NARRATIVE: CASE EVENT DATE: 201308
